FAERS Safety Report 11870348 (Version 1)
Quarter: 2015Q4

REPORT INFORMATION
  Report Type: Spontaneous
  Country: US (occurrence: None)
  Receive Date: 20151223
  Receipt Date: 20151223
  Transmission Date: 20160305
  Serious: No
  Sender: FDA-Public Use
  Company Number: None

PATIENT
  Age: 72 Year
  Sex: Male

DRUGS (11)
  1. BD PEN NEEDL [Concomitant]
  2. LANTUS SOLOSTAR [Concomitant]
     Active Substance: INSULIN GLARGINE
  3. METOPROLOL [Concomitant]
     Active Substance: METOPROLOL
  4. NOTRIPTYLIN CAP [Concomitant]
  5. ONDANSETRON [Concomitant]
     Active Substance: ONDANSETRON
  6. TAMSULOSIN [Concomitant]
     Active Substance: TAMSULOSIN
  7. AFINITOR [Suspect]
     Active Substance: EVEROLIMUS
     Indication: METASTASIS
     Route: 048
     Dates: start: 20151210
  8. DIAZEPAM. [Concomitant]
     Active Substance: DIAZEPAM
  9. LOSARTAN POT [Concomitant]
     Active Substance: LOSARTAN POTASSIUM
  10. ONETOUCH TES ULTRA BL [Concomitant]
  11. ZOLPIDEM [Concomitant]
     Active Substance: ZOLPIDEM\ZOLPIDEM TARTRATE

REACTIONS (4)
  - Blood glucose increased [None]
  - Respiratory tract congestion [None]
  - Decreased appetite [None]
  - Fatigue [None]

NARRATIVE: CASE EVENT DATE: 20151215
